FAERS Safety Report 9048879 (Version 1)
Quarter: 2013Q1

REPORT INFORMATION
  Report Type: Spontaneous
  Country: US (occurrence: None)
  Receive Date: 20130116
  Receipt Date: 20130116
  Transmission Date: 20140127
  Serious: Yes (Life-Threatening, Other)
  Sender: FDA-Public Use
  Company Number: 2013P1000245

PATIENT
  Sex: Male

DRUGS (1)
  1. HEPARIN [Suspect]

REACTIONS (6)
  - Accidental overdose [None]
  - Coagulopathy [None]
  - Thrombosis [None]
  - Sepsis [None]
  - Staphylococcal infection [None]
  - Blood viscosity increased [None]
